FAERS Safety Report 9185972 (Version 2)
Quarter: 2013Q1

REPORT INFORMATION
  Report Type: Spontaneous
  Country: GB (occurrence: GB)
  Receive Date: 20130325
  Receipt Date: 20130329
  Transmission Date: 20140127
  Serious: Yes (Hospitalization)
  Sender: FDA-Public Use
  Company Number: GB-ASTRAZENECA-2013SE17906

PATIENT
  Age: 23766 Day
  Sex: Female

DRUGS (3)
  1. MARCAIN [Suspect]
     Indication: ANAESTHESIA
     Dosage: 5MG/ML
     Route: 065
     Dates: start: 20130207
  2. DEPO-MEDRONE [Concomitant]
     Indication: ANAESTHESIA
     Dosage: 40MG/ML
     Dates: start: 20130207
  3. PHENYTOIN [Concomitant]
     Dosage: INCREASED DOSES

REACTIONS (9)
  - Pallor [Unknown]
  - Chest pain [Unknown]
  - Dyspnoea [Unknown]
  - Palpitations [Unknown]
  - Heart rate increased [Unknown]
  - Hypotension [Unknown]
  - Musculoskeletal pain [Unknown]
  - Pain in extremity [Unknown]
  - Neck pain [Unknown]
